FAERS Safety Report 7967614-3 (Version None)
Quarter: 2011Q4

REPORT INFORMATION
  Report Type: 
  Country: None (occurrence: None)
  Receive Date: 20111209
  Receipt Date: 20111129
  Transmission Date: 20120403
  Serious: Yes (Other)
  Sender: FDA-Public Use
  Company Number: CA-JNJFOC-20111201893

PATIENT
  Sex: Female
  Weight: 58 kg

DRUGS (1)
  1. REMICADE [Suspect]
     Indication: CROHN'S DISEASE
     Dosage: FREQUENCY EVERY 6-8 WEEKS

REACTIONS (3)
  - TOOTH ABSCESS [None]
  - TONSILLITIS [None]
  - PRECANCEROUS CELLS PRESENT [None]
